FAERS Safety Report 7091939-X (Version None)
Quarter: 2010Q4

REPORT INFORMATION
  Report Type: 
  Country: None (occurrence: None)
  Receive Date: 20101101
  Receipt Date: 20101015
  Transmission Date: 20110411
  Serious: Yes (Other)
  Sender: FDA-Public Use
  Company Number: CTI_01241_2010

PATIENT
  Age: 66 Year
  Sex: Female

DRUGS (8)
  1. HYOSCYAMINE 0.375 MG (ARISTOS PHARMACEUTICALS, INC.) [Suspect]
     Indication: IRRITABLE BOWEL SYNDROME
     Dosage: (1 DF BID)
     Dates: end: 20101014
  2. CLONAZEPAM [Concomitant]
  3. LUMIGAN [Concomitant]
  4. ZANTAC [Concomitant]
  5. CENTRUM SILVER /01292501/ [Concomitant]
  6. VITAMIN D3 [Concomitant]
  7. INTRAVITE B GROUP /00110001/ [Concomitant]
  8. SYNTHROID [Concomitant]

REACTIONS (15)
  - ATRIAL FIBRILLATION [None]
  - BLINDNESS [None]
  - CONDITION AGGRAVATED [None]
  - DRY EYE [None]
  - DRY MOUTH [None]
  - GLAUCOMA [None]
  - GOITRE [None]
  - HYPOTHYROIDISM [None]
  - MEDICATION RESIDUE [None]
  - ORAL PAIN [None]
  - PRODUCT QUALITY ISSUE [None]
  - RETINAL HAEMORRHAGE [None]
  - SENSITIVITY OF TEETH [None]
  - TACHYCARDIA [None]
  - VISION BLURRED [None]
